FAERS Safety Report 8829303 (Version 1)
Quarter: 2012Q4

REPORT INFORMATION
  Report Type: 
  Country: US (occurrence: US)
  Receive Date: 20121008
  Receipt Date: 20121008
  Transmission Date: 20130627
  Serious: Yes (Other)
  Sender: FDA-Public Use
  Company Number: US-ASTRAZENECA-2008UW17153

PATIENT
  Age: 72 Year
  Sex: Female

DRUGS (2)
  1. NEXIUM [Suspect]
     Indication: ULCER
     Route: 048
  2. NEXIUM [Suspect]
     Indication: ULCER
     Route: 048

REACTIONS (3)
  - Haemorrhage [Unknown]
  - Gastrointestinal haemorrhage [Unknown]
  - Intentional drug misuse [Unknown]
